FAERS Safety Report 9137444 (Version 1)
Quarter: 2013Q1

REPORT INFORMATION
  Report Type: Spontaneous
  Country: US (occurrence: US)
  Receive Date: 20130304
  Receipt Date: 20130304
  Transmission Date: 20140127
  Serious: No
  Sender: FDA-Public Use
  Company Number: US-ABBOTT-13P-163-1041782-00

PATIENT
  Sex: Male
  Weight: 88.53 kg

DRUGS (3)
  1. ANDROGEL [Suspect]
     Indication: HYPOTHALAMO-PITUITARY DISORDER
     Dosage: 3.75 GM ON MONDAYS, WEDNESDAYS, FRIDAYS
  2. ANDROGEL [Suspect]
     Dosage: 2.5 GM ON TUESDAYS, THURSDAY, SATURDAY, SUNDAY
  3. SYNTHROID [Concomitant]
     Indication: HYPOTHYROIDISM

REACTIONS (3)
  - Drug effect decreased [Not Recovered/Not Resolved]
  - Asthenia [Not Recovered/Not Resolved]
  - Muscle tightness [Not Recovered/Not Resolved]
